FAERS Safety Report 5751637-9 (Version None)
Quarter: 2008Q2

REPORT INFORMATION
  Report Type: 
  Country: None (occurrence: None)
  Receive Date: 20080528
  Receipt Date: 20080520
  Transmission Date: 20081010
  Serious: Yes (Other)
  Sender: FDA-Public Use
  Company Number: PHHY2008JP08417

PATIENT

DRUGS (3)
  1. DIOVAN [Suspect]
     Route: 048
  2. LASIX [Concomitant]
  3. ALDACTONE [Concomitant]
     Route: 048

REACTIONS (1)
  - HYPONATRAEMIA [None]
